FAERS Safety Report 4827507-7 (Version None)
Quarter: 2005Q4

REPORT INFORMATION
  Report Type: 
  Country: None (occurrence: None)
  Receive Date: 20051114
  Receipt Date: 20051102
  Transmission Date: 20060501
  Serious: Yes (Hospitalization)
  Sender: FDA-Public Use
  Company Number: GB-BRISTOL-MYERS SQUIBB COMPANY-13164637

PATIENT
  Age: 48 Year
  Sex: Male
  Weight: 84 kg

DRUGS (10)
  1. CISPLATIN [Suspect]
     Indication: LUNG SQUAMOUS CELL CARCINOMA STAGE UNSPECIFIED
     Route: 042
     Dates: start: 20050517, end: 20050818
  2. VINORELBINE [Suspect]
     Indication: LUNG SQUAMOUS CELL CARCINOMA STAGE UNSPECIFIED
     Dosage: GIVEN DAY 1 + 8 OF CYCLE
     Route: 042
     Dates: start: 20050517, end: 20050825
  3. ESOMEPRAZOLE [Concomitant]
     Route: 048
     Dates: end: 20050830
  4. DOMPERIDONE [Concomitant]
     Indication: NAUSEA
     Route: 048
  5. ONDANSETRON [Concomitant]
     Indication: NAUSEA
     Route: 048
  6. METOCLOPRAMIDE [Concomitant]
     Indication: NAUSEA
     Route: 048
  7. ORAMORPH SR [Concomitant]
     Route: 048
  8. MS CONTIN [Concomitant]
     Indication: PAIN
     Route: 048
  9. AMOXIL [Concomitant]
     Route: 048
  10. LANSOPRAZOLE [Concomitant]
     Route: 048
     Dates: start: 20050831

REACTIONS (1)
  - NEUTROPENIC SEPSIS [None]
